FAERS Safety Report 21851797 (Version 2)
Quarter: 2023Q1

REPORT INFORMATION
  Report Type: Spontaneous
  Country: RS (occurrence: RS)
  Receive Date: 20230112
  Receipt Date: 20230123
  Transmission Date: 20230418
  Serious: Yes (Hospitalization, Other)
  Sender: FDA-Public Use
  Company Number: RS-TEVA-2023-RS-2844175

PATIENT
  Age: 23 Year
  Sex: Female

DRUGS (11)
  1. CISPLATIN [Suspect]
     Active Substance: CISPLATIN
     Indication: Medulloblastoma
     Route: 065
  2. ETOPOSIDE [Suspect]
     Active Substance: ETOPOSIDE
     Indication: Ewing^s sarcoma
     Route: 065
  3. ETOPOSIDE [Suspect]
     Active Substance: ETOPOSIDE
     Indication: Metastases to central nervous system
  4. LOMUSTINE [Suspect]
     Active Substance: LOMUSTINE
     Indication: Medulloblastoma
     Route: 065
  5. VINCRISTINE [Suspect]
     Active Substance: VINCRISTINE
     Indication: Medulloblastoma
     Route: 065
  6. VINCRISTINE [Suspect]
     Active Substance: VINCRISTINE
     Indication: Ewing^s sarcoma
  7. VINCRISTINE [Suspect]
     Active Substance: VINCRISTINE
     Indication: Metastases to central nervous system
  8. IFOSFAMIDE [Suspect]
     Active Substance: IFOSFAMIDE
     Indication: Ewing^s sarcoma
     Route: 065
  9. IFOSFAMIDE [Suspect]
     Active Substance: IFOSFAMIDE
     Indication: Metastases to central nervous system
  10. DOXORUBICIN [Suspect]
     Active Substance: DOXORUBICIN
     Indication: Ewing^s sarcoma
     Route: 065
  11. DOXORUBICIN [Suspect]
     Active Substance: DOXORUBICIN
     Indication: Metastases to central nervous system

REACTIONS (3)
  - Ewing^s sarcoma [Unknown]
  - Metastases to central nervous system [Unknown]
  - Drug ineffective [Unknown]
